FAERS Safety Report 18700090 (Version 2)
Quarter: 2021Q1

REPORT INFORMATION
  Report Type: Spontaneous
  Country: IT (occurrence: IT)
  Receive Date: 20210105
  Receipt Date: 20210119
  Transmission Date: 20210419
  Serious: Yes (Hospitalization)
  Sender: FDA-Public Use
  Company Number: NVSC2020IT343804

PATIENT
  Age: 48 Year
  Sex: Female

DRUGS (4)
  1. VALIUM [Suspect]
     Active Substance: DIAZEPAM
     Indication: SUICIDE ATTEMPT
     Dosage: 2 ML (TOTAL) (1 VIAL)
     Route: 030
     Dates: start: 20201219, end: 20201219
  2. QUETIAPINE. [Suspect]
     Active Substance: QUETIAPINE
     Indication: SUICIDE ATTEMPT
     Dosage: 150 MG (TOTAL) (6 TABLETS)
     Route: 065
     Dates: start: 20201219, end: 20201219
  3. ZOLPIDEM TARTRATE. [Suspect]
     Active Substance: ZOLPIDEM TARTRATE
     Indication: SUICIDE ATTEMPT
     Dosage: 40 MG (TOTAL) (4 TABLETS)
     Route: 065
     Dates: start: 20201219, end: 20201219
  4. BROMAZEPAM [Suspect]
     Active Substance: BROMAZEPAM
     Indication: SUICIDE ATTEMPT
     Dosage: 10 ML (TOTAL (HALF A VIAL)
     Route: 065
     Dates: start: 20201219, end: 20201219

REACTIONS (3)
  - Tachycardia [Unknown]
  - Suicide attempt [Unknown]
  - Intentional overdose [Unknown]

NARRATIVE: CASE EVENT DATE: 20201219
